FAERS Safety Report 8992856 (Version 1)
Quarter: 2013Q1

REPORT INFORMATION
  Report Type: Spontaneous
  Country: NZ (occurrence: NZ)
  Receive Date: 20130102
  Receipt Date: 20130102
  Transmission Date: 20140127
  Serious: Yes (Hospitalization)
  Sender: FDA-Public Use
  Company Number: NZ-ELI_LILLY_AND_COMPANY-NZ201212006758

PATIENT
  Sex: Female

DRUGS (4)
  1. HUMULIN 30% REGULAR, 70% NPH [Suspect]
     Dosage: UNK, UNKNOWN
     Dates: start: 2006, end: 201202
  2. HUMALOG 25% LISPRO, 75% NPL [Suspect]
     Dosage: 28 U, EACH MORNING
     Dates: start: 201202
  3. HUMALOG 25% LISPRO, 75% NPL [Suspect]
     Dosage: 12 U, QD
     Dates: start: 20120225
  4. INSULIN GLARGINE [Concomitant]
     Dosage: 28 U, QD

REACTIONS (7)
  - Rash generalised [Recovering/Resolving]
  - Skin lesion [Recovering/Resolving]
  - Urticaria [Unknown]
  - Angiopathy [Unknown]
  - Oedema peripheral [Unknown]
  - Hypersensitivity [Unknown]
  - Glycosylated haemoglobin increased [Recovering/Resolving]
